FAERS Safety Report 7040445-7 (Version None)
Quarter: 2010Q4

REPORT INFORMATION
  Report Type: 
  Country: None (occurrence: None)
  Receive Date: 20101008
  Receipt Date: 20101008
  Transmission Date: 20110411
  Serious: No
  Sender: FDA-Public Use
  Company Number: None

PATIENT
  Age: 47 Year
  Sex: Female
  Weight: 81.6475 kg

DRUGS (4)
  1. ZAROXOLYN [Suspect]
     Indication: OEDEMA PERIPHERAL
     Dosage: 5 MG 1 A DAY
     Dates: start: 20100917
  2. ZAROXOLYN [Suspect]
     Indication: SWELLING
     Dosage: 5 MG 1 A DAY
     Dates: start: 20100917
  3. ZAROXOLYN [Suspect]
     Indication: OEDEMA PERIPHERAL
     Dosage: 5 MG 1 A DAY
     Dates: start: 20100918
  4. ZAROXOLYN [Suspect]
     Indication: SWELLING
     Dosage: 5 MG 1 A DAY
     Dates: start: 20100918

REACTIONS (5)
  - BACK PAIN [None]
  - CARDIAC ARREST [None]
  - DYSPNOEA [None]
  - GAIT DISTURBANCE [None]
  - MALAISE [None]
